FAERS Safety Report 11930481 (Version 1)
Quarter: 2016Q1

REPORT INFORMATION
  Report Type: Report from Study
  Country: BR (occurrence: BR)
  Receive Date: 20160120
  Receipt Date: 20160120
  Transmission Date: 20160526
  Serious: Yes (Other)
  Sender: FDA-Public Use
  Company Number: BR-ABBVIE-15K-020-1348051-00

PATIENT
  Age: 39 Year
  Sex: Male
  Weight: 75 kg

DRUGS (5)
  1. HUMIRA [Suspect]
     Active Substance: ADALIMUMAB
     Indication: CROHN^S DISEASE
     Dosage: INDUCTION DOSE, WEEK 0
     Route: 058
     Dates: start: 20140620, end: 20140620
  2. HUMIRA [Suspect]
     Active Substance: ADALIMUMAB
     Route: 058
     Dates: start: 201601
  3. HUMIRA [Suspect]
     Active Substance: ADALIMUMAB
     Dosage: INDUCTION DOSE, WEEK 2
     Route: 058
     Dates: start: 201407, end: 201407
  4. MESALAZINE [Concomitant]
     Active Substance: MESALAMINE
     Indication: CROHN^S DISEASE
     Route: 048
     Dates: start: 2000
  5. HUMIRA [Suspect]
     Active Substance: ADALIMUMAB
     Route: 058
     Dates: start: 201407, end: 20140725

REACTIONS (7)
  - Ultrasound scan abnormal [Unknown]
  - Intestinal dilatation [Unknown]
  - Gastrointestinal disorder [Unknown]
  - Intestinal perforation [Recovered/Resolved]
  - Road traffic accident [Recovered/Resolved]
  - Intestinal fistula [Unknown]
  - Post-traumatic stress disorder [Unknown]

NARRATIVE: CASE EVENT DATE: 2014
